FAERS Safety Report 5092340-0 (Version None)
Quarter: 2006Q3

REPORT INFORMATION
  Report Type: 
  Country: None (occurrence: None)
  Receive Date: 20060825
  Receipt Date: 20060815
  Transmission Date: 20061208
  Serious: No
  Sender: FDA-Public Use
  Company Number: US200607003518

PATIENT
  Age: 48 Year
  Sex: Female
  Weight: 59.9 kg

DRUGS (18)
  1. CYMBALTA [Suspect]
     Indication: FIBROMYALGIA
     Dosage: 40 MG, DAILY (1/D)
     Dates: start: 20060701, end: 20060724
  2. NASONEX [Concomitant]
  3. QVAR (BECLOMETASONE DIPROPIONATE) [Concomitant]
  4. ZANTAC [Concomitant]
  5. RITALIN [Concomitant]
  6. SKELAXIN [Concomitant]
  7. CENESTIN [Concomitant]
  8. ABILIFY [Concomitant]
  9. ULTRAM [Concomitant]
  10. PROVIGIL [Concomitant]
  11. DARVOCET-N 100 [Concomitant]
  12. NAPROXEN [Concomitant]
  13. PROVERA [Concomitant]
  14. SERZONE [Concomitant]
  15. LORAZEPAM [Concomitant]
  16. TOPAMAX /AUS/ (TOPIRAMATE) [Concomitant]
  17. LORATADINE [Concomitant]
  18. SINGULAIR [Concomitant]

REACTIONS (6)
  - CONFUSIONAL STATE [None]
  - FATIGUE [None]
  - HEPATIC ENZYME INCREASED [None]
  - LIVER FUNCTION TEST ABNORMAL [None]
  - NAUSEA [None]
  - SOMNOLENCE [None]
